FAERS Safety Report 5775844-4 (Version None)
Quarter: 2008Q2

REPORT INFORMATION
  Report Type: 
  Country: None (occurrence: None)
  Receive Date: 20080612
  Receipt Date: 20080515
  Transmission Date: 20081010
  Serious: Yes (Death)
  Sender: FDA-Public Use
  Company Number: VNL_01118_2008

PATIENT
  Sex: Female

DRUGS (1)
  1. APO-GO (APO-GO - APOMORPHINE HYDROCHLORIDE) (NOT SPECIFIED) [Suspect]
     Indication: DRUG USE FOR UNKNOWN INDICATION
     Dosage: (DF FOR SUBCUTANEOUS)
     Route: 058

REACTIONS (4)
  - DEVICE BREAKAGE [None]
  - DYSKINESIA [None]
  - LOWER RESPIRATORY TRACT INFECTION [None]
  - NODULE [None]
